FAERS Safety Report 9522155 (Version 3)
Quarter: 2013Q3

REPORT INFORMATION
  Report Type: Report from Study
  Country: TR (occurrence: TR)
  Receive Date: 20130913
  Receipt Date: 20130930
  Transmission Date: 20140515
  Serious: Yes (Death, Hospitalization)
  Sender: FDA-Public Use
  Company Number: TR-ROCHE-1221497

PATIENT
  Age: 86 Year
  Sex: Male

DRUGS (2)
  1. XELODA [Suspect]
     Indication: COLON CANCER
     Route: 048
     Dates: start: 20120925, end: 20130424
  2. XELODA [Suspect]
     Route: 048
     Dates: start: 20130508, end: 201309

REACTIONS (6)
  - Pain [Fatal]
  - Apoptosis [Fatal]
  - Embolism [Fatal]
  - Appendicitis [Not Recovered/Not Resolved]
  - Appendicectomy [Not Recovered/Not Resolved]
  - Influenza [Not Recovered/Not Resolved]
